FAERS Safety Report 21748750 (Version 1)
Quarter: 2022Q4

REPORT INFORMATION
  Report Type: Spontaneous
  Country: US (occurrence: US)
  Receive Date: 20221219
  Receipt Date: 20221219
  Transmission Date: 20230112
  Serious: Yes (Hospitalization)
  Sender: FDA-Public Use
  Company Number: US-INCYTE CORPORATION-2022IN012105

PATIENT

DRUGS (3)
  1. JAKAFI [Suspect]
     Active Substance: RUXOLITINIB
     Indication: Gastrointestinal inflammation
     Dosage: 5 MILLIGRAM, BID
     Route: 048
     Dates: start: 20220919
  2. JAKAFI [Suspect]
     Active Substance: RUXOLITINIB
     Indication: Colitis
  3. JAKAFI [Suspect]
     Active Substance: RUXOLITINIB
     Indication: Crohn^s disease

REACTIONS (4)
  - Condition aggravated [Unknown]
  - Vomiting [Unknown]
  - Product dose omission in error [Unknown]
  - Off label use [Unknown]

NARRATIVE: CASE EVENT DATE: 20220919
